FAERS Safety Report 6531045-3 (Version None)
Quarter: 2010Q1

REPORT INFORMATION
  Report Type: 
  Country: None (occurrence: None)
  Receive Date: 20100108
  Receipt Date: 20091019
  Transmission Date: 20100710
  Serious: No
  Sender: FDA-Public Use
  Company Number: A0812396A

PATIENT
  Sex: Female

DRUGS (1)
  1. LOVAZA [Suspect]
     Indication: DRUG USE FOR UNKNOWN INDICATION
     Dosage: 3CAP SINGLE DOSE
     Route: 048
     Dates: start: 20091001

REACTIONS (3)
  - ABDOMINAL PAIN UPPER [None]
  - BONE PAIN [None]
  - IRRITABLE BOWEL SYNDROME [None]
